FAERS Safety Report 18140355 (Version 1)
Quarter: 2020Q3

REPORT INFORMATION
  Report Type: Report from Study
  Country: DE (occurrence: DE)
  Receive Date: 20200812
  Receipt Date: 20200812
  Transmission Date: 20201103
  Serious: Yes (Death, Other)
  Sender: FDA-Public Use
  Company Number: DE-BRISTOL-MYERS SQUIBB COMPANY-17285271

PATIENT
  Age: 51 Year
  Sex: Male

DRUGS (3)
  1. TAZOBAC [PIPERACILLIN SODIUM;TAZOBACTAM SODIUM] [Concomitant]
     Indication: PYREXIA
     Dosage: INFUSION  FREQUENCY 3
     Route: 065
     Dates: start: 20130109, end: 20130110
  2. DASATINIB. [Suspect]
     Active Substance: DASATINIB
     Indication: ACUTE LYMPHOCYTIC LEUKAEMIA
     Dosage: CYCLE:42, DRUG INTERRUPTED ON 09JAN2013
     Route: 065
     Dates: end: 20130109
  3. GENTAMICIN. [Concomitant]
     Active Substance: GENTAMICIN
     Indication: PYREXIA
     Dosage: INFUSION  FREQUENCY 1
     Route: 065
     Dates: start: 20130109, end: 20130110

REACTIONS (1)
  - Pulmonary haemorrhage [Fatal]

NARRATIVE: CASE EVENT DATE: 20130110
